FAERS Safety Report 6885663-3 (Version None)
Quarter: 2010Q3

REPORT INFORMATION
  Report Type: 
  Country: None (occurrence: None)
  Receive Date: 20100729
  Receipt Date: 20080701
  Transmission Date: 20110219
  Serious: Yes (Other)
  Sender: FDA-Public Use
  Company Number: US-PFIZER INC-2008059372

PATIENT
  Sex: Female

DRUGS (5)
  1. CELEBREX [Suspect]
     Indication: FIBROMYALGIA
  2. IBUPROFEN [Suspect]
     Indication: FIBROMYALGIA
     Dates: start: 19900101, end: 20080101
  3. PAXIL [Concomitant]
  4. ZOLOFT [Concomitant]
  5. TRAZODONE [Concomitant]

REACTIONS (6)
  - HAEMATEMESIS [None]
  - HYPERTENSION [None]
  - INSOMNIA [None]
  - MUSCLE SPASMS [None]
  - NAUSEA [None]
  - SWELLING [None]
